FAERS Safety Report 7402095-X (Version None)
Quarter: 2011Q2

REPORT INFORMATION
  Report Type: 
  Country: None (occurrence: None)
  Receive Date: 20110405
  Receipt Date: 20110405
  Transmission Date: 20111010
  Serious: Yes (Life-Threatening, Hospitalization)
  Sender: FDA-Public Use
  Company Number: None

PATIENT
  Age: 16 Year
  Sex: Male
  Weight: 91.6266 kg

DRUGS (2)
  1. SMITH + NEPHEW IV PREP WIPES ISOPROPYL ALCOHOL 70% TRIAD GROUP, INC. W [Suspect]
     Indication: DIABETES MELLITUS
     Dosage: ONE WIPE PRIOR TO INJECTION TOP
     Route: 061
     Dates: start: 20050804, end: 20110328
  2. TARGET BRAND ALCOHOL SWABS ISOPROPYL ALCOHOL 70% TRIAD GROUP, INC. WIS [Suspect]
     Indication: DIABETES MELLITUS
     Dosage: ONE SWAB 6-8 TIMES A DAY TOP
     Route: 061
     Dates: start: 20100601, end: 20110328

REACTIONS (3)
  - BACTERIAL INFECTION [None]
  - PRODUCT QUALITY ISSUE [None]
  - PRODUCT CONTAMINATION MICROBIAL [None]
